FAERS Safety Report 14661356 (Version 1)
Quarter: 2018Q1

REPORT INFORMATION
  Report Type: Spontaneous
  Country: DE (occurrence: DE)
  Receive Date: 20180320
  Receipt Date: 20180320
  Transmission Date: 20180509
  Serious: Yes (Other)
  Sender: FDA-Public Use
  Company Number: DE-PFIZER INC-2018109418

PATIENT
  Age: 52 Year
  Sex: Female

DRUGS (2)
  1. METFORMIN [Concomitant]
     Active Substance: METFORMIN HYDROCHLORIDE
     Indication: UTERINE DISORDER
     Dosage: UNK
  2. SORTIS [Suspect]
     Active Substance: ATORVASTATIN
     Dosage: 20 UNK, 1X/DAY(IN THE EVENING)

REACTIONS (1)
  - Diabetes mellitus [Unknown]
